FAERS Safety Report 10211160 (Version 1)
Quarter: 2014Q2

REPORT INFORMATION
  Report Type: Spontaneous
  Country: US (occurrence: None)
  Receive Date: 20140530
  Receipt Date: 20140530
  Transmission Date: 20141212
  Serious: No
  Sender: FDA-Public Use
  Company Number: None

PATIENT
  Age: 60 Year
  Sex: Female
  Weight: 79.38 kg

DRUGS (1)
  1. VIIBRYD 20 MG [Suspect]
     Indication: MAJOR DEPRESSION
     Dosage: 1 PILL, 20 MG ONCE DAILY TAKEN BY MOUTH
     Route: 048
     Dates: start: 20130702, end: 20140108

REACTIONS (1)
  - Alopecia [None]
